FAERS Safety Report 13055140 (Version 3)
Quarter: 2017Q1

REPORT INFORMATION
  Report Type: Spontaneous
  Country: US (occurrence: US)
  Receive Date: 20161222
  Receipt Date: 20170316
  Transmission Date: 20170428
  Serious: Yes (Hospitalization, Other)
  Sender: FDA-Public Use
  Company Number: US-PFIZER INC-2016586507

PATIENT
  Age: 55 Year
  Sex: Female
  Weight: 58 kg

DRUGS (6)
  1. INLYTA [Suspect]
     Active Substance: AXITINIB
     Indication: METASTATIC RENAL CELL CARCINOMA
     Dosage: 5 MG, 2X/DAY (ONCE IN THE MORNING AND ONCE IN THE EVENING)
     Route: 048
     Dates: start: 20160930
  2. INLYTA [Suspect]
     Active Substance: AXITINIB
     Dosage: 5 MG, 2X/DAY (5 MG TABLET ONCE IN THE MORNING AND ONCE IN THE EVENING BY MOUTH)
     Route: 048
     Dates: start: 20161212, end: 20170121
  3. INLYTA [Suspect]
     Active Substance: AXITINIB
     Indication: RENAL CANCER
     Dosage: 5 MG, 1X/DAY
     Route: 048
     Dates: start: 20161012
  4. LEVOTHYROXINE. [Concomitant]
     Active Substance: LEVOTHYROXINE
     Indication: THYROID DISORDER
     Dosage: 112 UG, 1X/DAY
  5. INLYTA [Suspect]
     Active Substance: AXITINIB
     Dosage: 5 MG, 2X/DAY (2 PILLS A DAY, ONCE IN THE MORNING AND ONCE IN THE EVENING BY MOUTH)
     Route: 048
     Dates: start: 20161102
  6. VITAMIN D [Concomitant]
     Active Substance: CHOLECALCIFEROL
     Indication: VITAMIN D DEFICIENCY
     Dosage: 1 DF, CYCLIC; 50,000 ONE A WEEK FOR 5 WEEKS
     Dates: start: 20161126

REACTIONS (20)
  - Dysgeusia [Recovered/Resolved]
  - Vomiting [Recovered/Resolved]
  - Asthenia [Unknown]
  - Fatigue [Recovered/Resolved]
  - Dizziness [Unknown]
  - Seizure [Unknown]
  - Influenza like illness [Unknown]
  - Brain oedema [Unknown]
  - Confusional state [Unknown]
  - Gastroenteritis viral [Unknown]
  - Gastritis [Unknown]
  - Nausea [Recovered/Resolved]
  - Hypothyroidism [Not Recovered/Not Resolved]
  - Dysphonia [Recovered/Resolved]
  - Hypersomnia [Recovered/Resolved]
  - Diarrhoea [Recovered/Resolved]
  - Dehydration [Not Recovered/Not Resolved]
  - Malaise [Recovered/Resolved]
  - Decreased appetite [Recovered/Resolved]
  - Immune system disorder [Recovered/Resolved]
